FAERS Safety Report 21182935 (Version 1)
Quarter: 2022Q3

REPORT INFORMATION
  Report Type: Spontaneous
  Country: IT (occurrence: IT)
  Receive Date: 20220808
  Receipt Date: 20220808
  Transmission Date: 20221027
  Serious: Yes (Other)
  Sender: FDA-Public Use
  Company Number: None

PATIENT
  Age: 16 Year
  Sex: Female

DRUGS (3)
  1. QUETIAPINE [Suspect]
     Active Substance: QUETIAPINE
     Indication: Affective disorder
     Dosage: 1.2 G (1200 MG / TOTALE)
     Route: 048
     Dates: end: 20210701
  2. DELORAZEPAM [Concomitant]
     Active Substance: DELORAZEPAM
     Indication: Anorexia nervosa
     Dosage: UNK (16 GTT X 3/ DIE)
     Route: 048
     Dates: start: 20210701
  3. FLUOXETINE HYDROCHLORIDE [Concomitant]
     Active Substance: FLUOXETINE HYDROCHLORIDE
     Indication: Affective disorder
     Dosage: 60 MG (FLUOXETINA 60 MG / DIE)
     Route: 048
     Dates: start: 20210701

REACTIONS (3)
  - Drug abuse [Recovering/Resolving]
  - Apraxia [Recovering/Resolving]
  - Somnolence [Recovering/Resolving]

NARRATIVE: CASE EVENT DATE: 20220601
